FAERS Safety Report 9867123 (Version 2)
Quarter: 2014Q2

REPORT INFORMATION
  Report Type: Spontaneous
  Country: IT (occurrence: IT)
  Receive Date: 20140204
  Receipt Date: 20140402
  Transmission Date: 20141212
  Serious: Yes (Other)
  Sender: FDA-Public Use
  Company Number: IT-ROCHE-1343576

PATIENT
  Age: 66 Year
  Sex: Male

DRUGS (7)
  1. MABTHERA [Suspect]
     Indication: NON-HODGKIN^S LYMPHOMA
     Route: 042
     Dates: start: 20130829, end: 20130829
  2. LAMIVUDINE [Concomitant]
     Route: 048
  3. OMEPRAZOLE [Concomitant]
     Route: 048
  4. TACHIPIRINA [Concomitant]
     Indication: PREMEDICATION
     Route: 048
     Dates: start: 20130829, end: 20130829
  5. TRIMETON (ITALY) [Concomitant]
     Indication: PREMEDICATION
     Route: 042
     Dates: start: 20130829, end: 20130829
  6. MYCOSTATIN [Concomitant]
  7. MAG 2 (ITALY) [Concomitant]
     Route: 048

REACTIONS (1)
  - Loss of consciousness [Recovered/Resolved]
